FAERS Safety Report 5867782-3 (Version None)
Quarter: 2008Q3

REPORT INFORMATION
  Report Type: 
  Country: None (occurrence: None)
  Receive Date: 20080902
  Receipt Date: 20080819
  Transmission Date: 20090109
  Serious: Yes (Other)
  Sender: FDA-Public Use
  Company Number: GB-ELI_LILLY_AND_COMPANY-GB200808004141

PATIENT
  Age: 55 Year
  Sex: Male

DRUGS (2)
  1. PROZAC [Suspect]
     Indication: DEPRESSION
     Dosage: UNK, UNKNOWN
     Route: 065
  2. PROZAC [Suspect]
     Dosage: UNK, UNKNOWN
     Route: 065

REACTIONS (2)
  - CARCINOID SYNDROME [None]
  - CARCINOID TUMOUR [None]
